FAERS Safety Report 15074430 (Version 1)
Quarter: 2018Q2

REPORT INFORMATION
  Report Type: Spontaneous
  Country: GB (occurrence: GB)
  Receive Date: 20180627
  Receipt Date: 20180627
  Transmission Date: 20180711
  Serious: Yes (Other)
  Sender: FDA-Public Use
  Company Number: GB-TEVA-2018-GB-912227

PATIENT
  Age: 55 Year
  Sex: Female
  Weight: 60 kg

DRUGS (1)
  1. MIRTAZAPINE. [Suspect]
     Active Substance: MIRTAZAPINE
     Indication: INSOMNIA
     Dosage: 15MG DOWN TO 0.3 MG - VERY GRADUAL REDUCTION
     Route: 048
     Dates: start: 20151113, end: 20180503

REACTIONS (3)
  - Abnormal weight gain [Recovered/Resolved]
  - Withdrawal syndrome [Recovered/Resolved with Sequelae]
  - Restless legs syndrome [Recovered/Resolved]

NARRATIVE: CASE EVENT DATE: 20151116
